FAERS Safety Report 7988964-0 (Version None)
Quarter: 2011Q4

REPORT INFORMATION
  Report Type: 
  Country: None (occurrence: None)
  Receive Date: 20111219
  Receipt Date: 20111207
  Transmission Date: 20120403
  Serious: Yes (Hospitalization, Other)
  Sender: FDA-Public Use
  Company Number: US-BAYER-201036656NA

PATIENT
  Age: 23 Year
  Sex: Female
  Weight: 115.65 kg

DRUGS (2)
  1. SYNTHROID [Concomitant]
     Dosage: 0.075 MG, QD
  2. YASMIN [Suspect]
     Dosage: UNK
     Route: 048
     Dates: start: 20030601, end: 20060301

REACTIONS (6)
  - ANXIETY [None]
  - PSYCHOLOGICAL TRAUMA [None]
  - DEEP VEIN THROMBOSIS [None]
  - THROMBOSIS [None]
  - MENTAL DISORDER [None]
  - PELVIC VENOUS THROMBOSIS [None]
